FAERS Safety Report 7609464-3 (Version None)
Quarter: 2011Q3

REPORT INFORMATION
  Report Type: 
  Country: None (occurrence: None)
  Receive Date: 20110713
  Receipt Date: 20110713
  Transmission Date: 20111222
  Serious: Yes (Other)
  Sender: FDA-Public Use
  Company Number: None

PATIENT
  Age: 59 Year
  Sex: Female
  Weight: 63.05 kg

DRUGS (2)
  1. METOPROLOL SUCCINATE [Suspect]
     Indication: MENOPAUSAL SYMPTOMS
     Dosage: 12 1/2 MG. EA. 24 HOURS
     Dates: start: 20110101, end: 20110711
  2. METOPROLOL SUCCINATE [Suspect]
     Indication: CARDIAC FLUTTER
     Dosage: 12 1/2 MG. EA. 24 HOURS
     Dates: start: 20110101, end: 20110711

REACTIONS (13)
  - PRURITUS [None]
  - DISORIENTATION [None]
  - NAUSEA [None]
  - CARDIAC FLUTTER [None]
  - INSOMNIA [None]
  - HYPOAESTHESIA ORAL [None]
  - CHEST DISCOMFORT [None]
  - LIBIDO DECREASED [None]
  - HYPERSENSITIVITY [None]
  - LIP SWELLING [None]
  - BLOOD PRESSURE INCREASED [None]
  - VULVOVAGINAL DRYNESS [None]
  - ANXIETY [None]
